FAERS Safety Report 7722404-1 (Version None)
Quarter: 2011Q3

REPORT INFORMATION
  Report Type: 
  Country: None (occurrence: None)
  Receive Date: 20110831
  Receipt Date: 20110825
  Transmission Date: 20111222
  Serious: Yes (Other)
  Sender: FDA-Public Use
  Company Number: DE-PFIZER INC-2011133743

PATIENT
  Age: 51 Year
  Sex: Female

DRUGS (1)
  1. VARENICLINE TARTRATE [Suspect]
     Dosage: 0.5 MG UP TO 2 X 1 MG DAILY, INTAKE UNREGULAR WITH INTERVALS
     Dates: start: 20101027

REACTIONS (10)
  - EYE IRRITATION [None]
  - PYREXIA [None]
  - SKIN DISORDER [None]
  - SPEECH DISORDER [None]
  - ABNORMAL SENSATION IN EYE [None]
  - DYSGEUSIA [None]
  - SOMNOLENCE [None]
  - DIZZINESS [None]
  - NIGHTMARE [None]
  - PSYCHOTIC DISORDER [None]
